FAERS Safety Report 19177105 (Version 3)
Quarter: 2021Q2

REPORT INFORMATION
  Report Type: Spontaneous
  Country: US (occurrence: US)
  Receive Date: 20210424
  Receipt Date: 20210623
  Transmission Date: 20210717
  Serious: No
  Sender: FDA-Public Use
  Company Number: US-ASTRAZENECA-2021A290229

PATIENT
  Age: 51 Year
  Sex: Female

DRUGS (12)
  1. DULOXETINE. [Concomitant]
     Active Substance: DULOXETINE
  2. FERROUS SULFATE. [Concomitant]
     Active Substance: FERROUS SULFATE
  3. LIDOCAINE. [Concomitant]
     Active Substance: LIDOCAINE
  4. MONTELUKAST [Concomitant]
     Active Substance: MONTELUKAST SODIUM
  5. LOSARTAN. [Concomitant]
     Active Substance: LOSARTAN
  6. NEXIUM [Suspect]
     Active Substance: ESOMEPRAZOLE MAGNESIUM
     Route: 048
  7. CRESTOR [Suspect]
     Active Substance: ROSUVASTATIN CALCIUM
     Route: 048
  8. AMILORIDE [Concomitant]
     Active Substance: AMILORIDE
  9. ASPIRIN. [Concomitant]
     Active Substance: ASPIRIN
  10. BYDUREON [Suspect]
     Active Substance: EXENATIDE
     Route: 065
  11. TYLENOL [Concomitant]
     Active Substance: ACETAMINOPHEN
  12. ALBUTEROL. [Concomitant]
     Active Substance: ALBUTEROL

REACTIONS (9)
  - Device leakage [Unknown]
  - Diabetes mellitus [Unknown]
  - Weight decreased [Unknown]
  - Myalgia [Unknown]
  - Needle issue [Unknown]
  - Hypersensitivity [Unknown]
  - Eye disorder [Unknown]
  - Incorrect dose administered by device [Unknown]
  - Gastric disorder [Unknown]
